FAERS Safety Report 6816832-6 (Version None)
Quarter: 2010Q3

REPORT INFORMATION
  Report Type: 
  Country: None (occurrence: None)
  Receive Date: 20100706
  Receipt Date: 20100624
  Transmission Date: 20110219
  Serious: Yes (Hospitalization)
  Sender: FDA-Public Use
  Company Number: JP-ASTRAZENECA-2010SE23170

PATIENT
  Age: 1080 Month
  Sex: Male
  Weight: 57 kg

DRUGS (9)
  1. CASODEX [Suspect]
     Indication: PROSTATE CANCER
     Route: 048
     Dates: start: 20080801, end: 20100519
  2. LEUPLIN [Suspect]
     Indication: PROSTATE CANCER
     Route: 058
     Dates: start: 20080801, end: 20100519
  3. ITRIZOLE [Concomitant]
     Route: 048
  4. MYSLEE [Concomitant]
     Route: 048
  5. TAMSULOSIN HCL [Concomitant]
     Route: 048
  6. NAUZELIN [Concomitant]
     Route: 065
  7. SENNOSIDE [Concomitant]
     Route: 048
  8. NEOMALLERMIN-TR [Concomitant]
     Route: 048
  9. AZELASTINE HCL [Concomitant]
     Route: 048

REACTIONS (4)
  - EOSINOPHIL COUNT INCREASED [None]
  - INTERSTITIAL LUNG DISEASE [None]
  - PLATELET COUNT DECREASED [None]
  - WHITE BLOOD CELL COUNT DECREASED [None]
